FAERS Safety Report 4972081-8 (Version None)
Quarter: 2006Q2

REPORT INFORMATION
  Report Type: 
  Country: None (occurrence: None)
  Receive Date: 20060407
  Receipt Date: 20060126
  Transmission Date: 20061013
  Serious: Yes (Other)
  Sender: FDA-Public Use
  Company Number: 2006041446

PATIENT
  Sex: Male

DRUGS (2)
  1. BEXTRA [Suspect]
     Indication: ILL-DEFINED DISORDER
     Dates: start: 20030501
  2. CELEBREX [Suspect]
     Indication: ILL-DEFINED DISORDER
     Dates: start: 19990606

REACTIONS (1)
  - STEVENS-JOHNSON SYNDROME [None]
